FAERS Safety Report 6007769-3 (Version None)
Quarter: 2008Q4

REPORT INFORMATION
  Report Type: 
  Country: None (occurrence: None)
  Receive Date: 20081217
  Receipt Date: 20080819
  Transmission Date: 20090506
  Serious: No
  Sender: FDA-Public Use
  Company Number: US-ASTRAZENECA-2008UW11115

PATIENT
  Age: 78 Year
  Sex: Female
  Weight: 54.4 kg

DRUGS (7)
  1. CRESTOR [Suspect]
     Route: 048
  2. GLYBURIDE [Concomitant]
  3. ENALAPRIL MALEATE [Concomitant]
  4. ASPIRIN [Concomitant]
  5. LOVAZA [Concomitant]
  6. FUROSEMIDE [Concomitant]
  7. HYDROCODONE BITARTRATE [Concomitant]

REACTIONS (2)
  - MYALGIA [None]
  - PAIN IN EXTREMITY [None]
